FAERS Safety Report 18631500 (Version 3)
Quarter: 2021Q1

REPORT INFORMATION
  Report Type: Spontaneous
  Country: AU (occurrence: AU)
  Receive Date: 20201218
  Receipt Date: 20210112
  Transmission Date: 20210419
  Serious: Yes (Other)
  Sender: FDA-Public Use
  Company Number: AU-REGENERON PHARMACEUTICALS, INC.-2020-95319

PATIENT

DRUGS (1)
  1. EYLEA [Suspect]
     Active Substance: AFLIBERCEPT
     Indication: DIABETIC RETINAL OEDEMA
     Dosage: 1 DF, ONCE (BOTH EYES)
     Route: 031

REACTIONS (4)
  - Device use issue [Unknown]
  - Injection site pain [Unknown]
  - Intraocular pressure increased [Unknown]
  - Blindness transient [Recovered/Resolved]
